FAERS Safety Report 9187464 (Version 2)
Quarter: 2013Q2

REPORT INFORMATION
  Report Type: Spontaneous
  Country: US (occurrence: US)
  Receive Date: 20130325
  Receipt Date: 20130416
  Transmission Date: 20140414
  Serious: No
  Sender: FDA-Public Use
  Company Number: US-PFIZER INC-2013092716

PATIENT
  Sex: Male

DRUGS (1)
  1. XALKORI [Suspect]
     Indication: LUNG NEOPLASM MALIGNANT
     Dosage: 250 MG, 2X/DAY
     Route: 048
     Dates: start: 201302

REACTIONS (5)
  - Oedema peripheral [Unknown]
  - Dysgeusia [Unknown]
  - Constipation [Unknown]
  - Visual impairment [Unknown]
  - Feeling hot [Unknown]
